FAERS Safety Report 9611795 (Version 1)
Quarter: 2013Q4

REPORT INFORMATION
  Report Type: Spontaneous
  Country: US (occurrence: None)
  Receive Date: 20131008
  Receipt Date: 20131008
  Transmission Date: 20140711
  Serious: Yes (Hospitalization)
  Sender: FDA-Public Use
  Company Number: 2012033124

PATIENT
  Age: 42 Year
  Sex: Male
  Weight: 73.48 kg

DRUGS (18)
  1. PRIVIGEN (IMMUNE GLOBULIN INTRAVENOUS (HUMAN) 10% LIQUID) [Suspect]
     Indication: IMMUNODEFICIENCY COMMON VARIABLE
     Dosage: (35 G 1X/3WEEKS, 5 GM VIAL; 350 ML WITH MAX RATE OF 384 ML/HR(128 GTTS/MIN); REC^D 15 GM ONLY INTRAVENOUS (NOT OTHERWISE SPECIFIED)
     Route: 042
     Dates: start: 20120808, end: 20120808
  2. PRIVIGEN (IMMUNE GLOBULIN INTRAVENOUS (HUMAN) 10% LIQUID) [Suspect]
     Indication: ASTHMA
     Dosage: (35 G 1X/3WEEKS, 5 GM VIAL; 350 ML WITH MAX RATE OF 384 ML/HR(128 GTTS/MIN); REC^D 15 GM ONLY INTRAVENOUS (NOT OTHERWISE SPECIFIED)
     Route: 042
     Dates: start: 20120808, end: 20120808
  3. HEPARIN (HEPARIN) [Concomitant]
  4. SODIUM CHLORIDE [Concomitant]
  5. LUNESTA (ESZOPICLONE) [Concomitant]
  6. XOPENEX (LEVOSALBUTAMOL) [Concomitant]
  7. OXYGEN (OXYGEN) [Concomitant]
  8. SOMA (CARISOPRODOL) [Concomitant]
  9. LORAZEPAM (LORAZEPAM) [Concomitant]
  10. PROZAC (FLUOXETINE HYDROCHLORIDE) [Concomitant]
  11. ACIPHEX (RABEPRAZOLE SODIUM) [Concomitant]
  12. CONCERTA (METHYLPHENIDATE HYDROCHLORIDE) [Concomitant]
  13. TYLENOL (PARACETAMOL) [Concomitant]
  14. MUCINEX [Concomitant]
  15. HYDROCODONE APAP (PROCET /01554201/) [Concomitant]
  16. BENADRYL (DIPHENHYDRAMINE HYDROCHLORIDE) [Concomitant]
  17. EPIPEN (EPINEPHRINE) [Concomitant]
  18. BACTRIM (BACTRIM /00086101/) [Concomitant]

REACTIONS (2)
  - Dyspnoea [None]
  - Rash [None]
